FAERS Safety Report 6207309-X (Version None)
Quarter: 2009Q2

REPORT INFORMATION
  Report Type: 
  Country: None (occurrence: None)
  Receive Date: 20090527
  Receipt Date: 20090527
  Transmission Date: 20091009
  Serious: Yes (Death, Life-Threatening, Hospitalization)
  Sender: FDA-Public Use
  Company Number: None

PATIENT
  Age: 83 Year
  Sex: Male
  Weight: 71.8 kg

DRUGS (14)
  1. WARFARIN SODIUM [Suspect]
     Indication: ATRIAL FIBRILLATION
     Dosage: 3MG ALT 2MG DAILY PO CHRONIC
     Route: 048
  2. ASPIRIN [Suspect]
     Indication: ATRIAL FIBRILLATION
     Dosage: 82MG DIALY PO CHRONIC
     Route: 048
  3. OSCAL [Concomitant]
  4. VIT D [Concomitant]
  5. SYNTHROID [Concomitant]
  6. LISINOPRIL [Concomitant]
  7. ASPIRIN [Concomitant]
  8. COUMADIN [Concomitant]
  9. RYTHMOL [Concomitant]
  10. VIT B12 [Concomitant]
  11. INSULIN [Concomitant]
  12. LORAZEPAM [Concomitant]
  13. LOMATOL [Concomitant]
  14. COREG [Concomitant]

REACTIONS (8)
  - COMA [None]
  - FALL [None]
  - HEAD INJURY [None]
  - INTERNATIONAL NORMALISED RATIO INCREASED [None]
  - INTRAVENTRICULAR HAEMORRHAGE [None]
  - LETHARGY [None]
  - NAUSEA [None]
  - SUBDURAL HAEMATOMA [None]
